FAERS Safety Report 13953336 (Version 1)
Quarter: 2017Q3

REPORT INFORMATION
  Report Type: Spontaneous
  Country: US (occurrence: None)
  Receive Date: 20170908
  Receipt Date: 20170908
  Transmission Date: 20171128
  Serious: Yes (Hospitalization)
  Sender: FDA-Public Use
  Company Number: None

PATIENT
  Age: 22 Year
  Sex: Female

DRUGS (9)
  1. LETAIRIS [Suspect]
     Active Substance: AMBRISENTAN
     Indication: PULMONARY ARTERIAL HYPERTENSION
     Route: 048
     Dates: start: 201609
  2. LORAZEPAM. [Concomitant]
     Active Substance: LORAZEPAM
  3. FUROSEMIDE. [Concomitant]
     Active Substance: FUROSEMIDE
  4. WARFARIN [Concomitant]
     Active Substance: WARFARIN
  5. TRAMADOL. [Concomitant]
     Active Substance: TRAMADOL
  6. REMODULIN [Concomitant]
     Active Substance: TREPROSTINIL
  7. KCL [Concomitant]
     Active Substance: POTASSIUM CHLORIDE
  8. CIALIS [Concomitant]
     Active Substance: TADALAFIL
  9. SERTRALINE [Concomitant]
     Active Substance: SERTRALINE HYDROCHLORIDE

REACTIONS (3)
  - Klebsiella bacteraemia [None]
  - Pyelonephritis [None]
  - Urinary tract infection [None]

NARRATIVE: CASE EVENT DATE: 20170826
